FAERS Safety Report 7501623-3 (Version None)
Quarter: 2011Q2

REPORT INFORMATION
  Report Type: 
  Country: None (occurrence: None)
  Receive Date: 20110524
  Receipt Date: 20110513
  Transmission Date: 20111010
  Serious: Yes (Hospitalization)
  Sender: FDA-Public Use
  Company Number: US-WATSON-2011-06265

PATIENT
  Age: 66 Year
  Sex: Male

DRUGS (1)
  1. ANDRODERM [Suspect]
     Indication: BLOOD TESTOSTERONE DECREASED
     Dosage: 1 PATCH NIGHTLY
     Route: 062
     Dates: start: 20110422

REACTIONS (2)
  - STAPHYLOCOCCAL INFECTION [None]
  - APPLICATION SITE ERYTHEMA [None]
